FAERS Safety Report 5001110-0 (Version None)
Quarter: 2006Q2

REPORT INFORMATION
  Report Type: 
  Country: None (occurrence: None)
  Receive Date: 20060512
  Receipt Date: 20060504
  Transmission Date: 20061013
  Serious: Yes (Hospitalization)
  Sender: FDA-Public Use
  Company Number: US-AVENTIS-200614107US

PATIENT
  Sex: Male

DRUGS (5)
  1. LANTUS [Suspect]
     Indication: DIABETES MELLITUS NON-INSULIN-DEPENDENT
     Dosage: DOSE: UNK
     Dates: start: 20040101, end: 20060501
  2. NOVOLOG MIX 70/30 [Concomitant]
     Dosage: DOSE: UNK
  3. LIPITOR [Concomitant]
     Dosage: DOSE: UNK
  4. ATENOLOL [Concomitant]
     Dosage: DOSE: UNK
  5. AVANDIA [Concomitant]
     Dosage: DOSE: UNK

REACTIONS (2)
  - BLOOD GLUCOSE INCREASED [None]
  - CEREBROVASCULAR ACCIDENT [None]
